FAERS Safety Report 11779619 (Version 2)
Quarter: 2015Q4

REPORT INFORMATION
  Report Type: Spontaneous
  Country: BR (occurrence: BR)
  Receive Date: 20151125
  Receipt Date: 20151230
  Transmission Date: 20160304
  Serious: Yes (Hospitalization)
  Sender: FDA-Public Use
  Company Number: BR-VALIDUS PHARMACEUTICALS LLC-BR-2015VAL000741

PATIENT

DRUGS (1)
  1. PARLODEL [Suspect]
     Active Substance: BROMOCRIPTINE MESYLATE
     Indication: BRAIN NEOPLASM
     Dosage: 1 DF, QHS AT NIGHT
     Route: 048
     Dates: end: 20151029

REACTIONS (4)
  - Amnesia [Recovering/Resolving]
  - Product use issue [Unknown]
  - Syncope [Recovering/Resolving]
  - Loss of consciousness [Recovering/Resolving]
